FAERS Safety Report 18580070 (Version 1)
Quarter: 2020Q4

REPORT INFORMATION
  Report Type: Spontaneous
  Country: BE (occurrence: BE)
  Receive Date: 20201204
  Receipt Date: 20201204
  Transmission Date: 20210114
  Serious: Yes (Hospitalization, Other)
  Sender: FDA-Public Use
  Company Number: BE-PFIZER INC-2020470548

PATIENT
  Age: 71 Year
  Sex: Male

DRUGS (9)
  1. LEVOTHYROXINUM [Concomitant]
     Indication: HYPOTHYROIDISM
     Dosage: 50 UG, DAILY
  2. VERAPAMIL [Concomitant]
     Active Substance: VERAPAMIL HYDROCHLORIDE
     Dosage: 240 MG, DAILY
  3. IPRATROPIUM BROMIDE AND SALBUTAMOL SULFATE [Concomitant]
     Active Substance: ALBUTEROL SULFATE\IPRATROPIUM BROMIDE
     Indication: CHRONIC OBSTRUCTIVE PULMONARY DISEASE
     Dosage: UNK UNK, 4X/DAY
     Route: 055
  4. AMOXYCILLIN [Concomitant]
     Active Substance: AMOXICILLIN
     Dosage: 500 MG, 3X/DAY
  5. FUROSEMIDE. [Concomitant]
     Active Substance: FUROSEMIDE
     Dosage: 80 MG (EVERY TWO DAYS)
  6. METHYLPREDNISOLONE. [Suspect]
     Active Substance: METHYLPREDNISOLONE
     Indication: OSTEOPOROSIS
  7. COLCHICINE. [Concomitant]
     Active Substance: COLCHICINE
     Dosage: 1 MG, DAILY
  8. METHYLPREDNISOLONE. [Suspect]
     Active Substance: METHYLPREDNISOLONE
     Indication: CHRONIC RESPIRATORY DISEASE
     Dosage: 16 MG, DAILY
  9. ALLOPURINOL. [Concomitant]
     Active Substance: ALLOPURINOL
     Dosage: 100 MG, DAILY

REACTIONS (1)
  - Cryptococcosis [Recovered/Resolved]
